FAERS Safety Report 7796809-7 (Version None)
Quarter: 2011Q4

REPORT INFORMATION
  Report Type: 
  Country: None (occurrence: None)
  Receive Date: 20111005
  Receipt Date: 20110926
  Transmission Date: 20120403
  Serious: Yes (Other)
  Sender: FDA-Public Use
  Company Number: US-BAYER-2011-091006

PATIENT
  Sex: Female

DRUGS (2)
  1. MIRENA [Suspect]
     Dosage: UNK
     Dates: start: 20110909
  2. MIRENA [Suspect]
     Dosage: UNK
     Dates: start: 20110909, end: 20110909

REACTIONS (2)
  - DEVICE DIFFICULT TO USE [None]
  - DEVICE DISLOCATION [None]
